FAERS Safety Report 11050494 (Version 1)
Quarter: 2015Q2

REPORT INFORMATION
  Report Type: Spontaneous
  Country: US (occurrence: None)
  Receive Date: 20150420
  Receipt Date: 20150420
  Transmission Date: 20150821
  Serious: Yes (Life-Threatening, Hospitalization)
  Sender: FDA-Public Use
  Company Number: None

PATIENT
  Age: 59 Year
  Sex: Male
  Weight: 66.68 kg

DRUGS (3)
  1. PLAVIX [Suspect]
     Active Substance: CLOPIDOGREL BISULFATE
     Indication: STENT PLACEMENT
     Dosage: 1 PILL
     Route: 048
     Dates: start: 20050508, end: 20141214
  2. PLAVIX [Suspect]
     Active Substance: CLOPIDOGREL BISULFATE
     Indication: MYOCARDIAL INFARCTION
     Dosage: 1 PILL
     Route: 048
     Dates: start: 20050508, end: 20141214
  3. PLAVIX [Suspect]
     Active Substance: CLOPIDOGREL BISULFATE
     Indication: VASCULAR GRAFT
     Dosage: 1 PILL
     Route: 048
     Dates: start: 20050508, end: 20141214

REACTIONS (3)
  - Varices oesophageal [None]
  - Hepatic failure [None]
  - Coagulopathy [None]

NARRATIVE: CASE EVENT DATE: 20141214
